FAERS Safety Report 20900708 (Version 1)
Quarter: 2022Q2

REPORT INFORMATION
  Report Type: Spontaneous
  Country: PL (occurrence: PL)
  Receive Date: 20220601
  Receipt Date: 20220601
  Transmission Date: 20220721
  Serious: Yes (Other)
  Sender: FDA-Public Use
  Company Number: None

PATIENT
  Age: 62 Year
  Sex: Female
  Weight: 54 kg

DRUGS (2)
  1. DOCETAXEL [Suspect]
     Active Substance: DOCETAXEL
     Dosage: UNIT DOSE: 78 MG, DRUG NOT USED IN THE PAST
     Route: 041
     Dates: start: 20220421, end: 20220421
  2. FLUOROURACIL [Suspect]
     Active Substance: FLUOROURACIL
     Dosage: UNIT DOSE: 4056 MG, DRUG NOT USED IN THE PAST, ROUTE OF ADMINISTRATION : PUMP, DURATION :1 DAYS
     Route: 042
     Dates: start: 20220421, end: 20220422

REACTIONS (1)
  - Anaemia [Recovered/Resolved with Sequelae]

NARRATIVE: CASE EVENT DATE: 20220505
